APPROVED DRUG PRODUCT: IRON SUCROSE
Active Ingredient: IRON SUCROSE
Strength: EQ 100MG IRON/5ML (EQ 20MG IRON/ML)
Dosage Form/Route: INJECTABLE;INTRAVENOUS
Application: A208977 | Product #002 | TE Code: AB
Applicant: INTERNATIONAL MEDICATION SYSTEMS LTD
Approved: Aug 8, 2025 | RLD: No | RS: No | Type: RX